FAERS Safety Report 11069424 (Version 1)
Quarter: 2015Q2

REPORT INFORMATION
  Report Type: Report from Study
  Country: MX (occurrence: MX)
  Receive Date: 20150427
  Receipt Date: 20150427
  Transmission Date: 20150821
  Serious: Yes (Other)
  Sender: FDA-Public Use
  Company Number: MX-BAYER-2015-153714

PATIENT
  Age: 43 Year
  Sex: Female
  Weight: 62 kg

DRUGS (1)
  1. BETAFERON [Suspect]
     Active Substance: INTERFERON BETA-1B
     Indication: MULTIPLE SCLEROSIS
     Dosage: 1 DF, QOD
     Route: 058
     Dates: start: 20150312

REACTIONS (9)
  - Aspartate aminotransferase increased [None]
  - Lymphocyte count decreased [None]
  - Blood bilirubin increased [None]
  - Bilirubin conjugated increased [None]
  - Blood lactate dehydrogenase decreased [None]
  - Reticulocyte percentage decreased [None]
  - Alanine aminotransferase increased [None]
  - Neutrophil count increased [None]
  - Haemoglobin increased [None]

NARRATIVE: CASE EVENT DATE: 20150401
